APPROVED DRUG PRODUCT: OXYMORPHONE HYDROCHLORIDE
Active Ingredient: OXYMORPHONE HYDROCHLORIDE
Strength: 10MG
Dosage Form/Route: TABLET;ORAL
Application: A201187 | Product #002 | TE Code: AB
Applicant: EPIC PHARMA LLC
Approved: Dec 15, 2014 | RLD: No | RS: No | Type: RX